FAERS Safety Report 7478000-7 (Version None)
Quarter: 2011Q2

REPORT INFORMATION
  Report Type: 
  Country: None (occurrence: None)
  Receive Date: 20110511
  Receipt Date: 20110511
  Transmission Date: 20111010
  Serious: Yes (Other)
  Sender: FDA-Public Use
  Company Number: None

PATIENT
  Age: 19 Year
  Sex: Female
  Weight: 46.2669 kg

DRUGS (1)
  1. CITALOPRAM HYDROBROMIDE [Suspect]
     Indication: DEPRESSION
     Dosage: 10 MF BID PO
     Route: 048
     Dates: start: 20081012, end: 20110505

REACTIONS (10)
  - PREMENSTRUAL SYNDROME [None]
  - MENORRHAGIA [None]
  - DRUG DISPENSING ERROR [None]
  - INSOMNIA [None]
  - MEDICATION ERROR [None]
  - PRURITUS [None]
  - ANAEMIA [None]
  - EDUCATIONAL PROBLEM [None]
  - DEPRESSION [None]
  - HAIR GROWTH ABNORMAL [None]
